FAERS Safety Report 19496645 (Version 1)
Quarter: 2021Q3

REPORT INFORMATION
  Report Type: Spontaneous
  Country: US (occurrence: US)
  Receive Date: 20210703
  Receipt Date: 20210703
  Transmission Date: 20211014
  Serious: Yes (Life-Threatening, Hospitalization, Other)
  Sender: FDA-Public Use
  Company Number: None

PATIENT
  Age: 59 Year
  Sex: Female
  Weight: 74.25 kg

DRUGS (3)
  1. PERMAPORT [Concomitant]
  2. AVASTIN [Suspect]
     Active Substance: BEVACIZUMAB
     Indication: VAGINAL CANCER STAGE IVB
     Dosage: ?          OTHER ROUTE:PERMAPORT CHEMOTHERAPY IV?
     Dates: start: 20161227, end: 20170110
  3. AVASTIN [Suspect]
     Active Substance: BEVACIZUMAB
     Indication: CERVIX CARCINOMA STAGE IV
     Dosage: ?          OTHER ROUTE:PERMAPORT CHEMOTHERAPY IV?
     Dates: start: 20161227, end: 20170110

REACTIONS (3)
  - Generalised tonic-clonic seizure [None]
  - Headache [None]
  - Vomiting [None]

NARRATIVE: CASE EVENT DATE: 20170112
